FAERS Safety Report 8422562-X (Version None)
Quarter: 2012Q2

REPORT INFORMATION
  Report Type: 
  Country: None (occurrence: None)
  Receive Date: 20120604
  Receipt Date: 20120518
  Transmission Date: 20120825
  Serious: Yes (Other)
  Sender: FDA-Public Use
  Company Number: 2012SGN00163

PATIENT
  Age: 26 Year
  Sex: Female

DRUGS (6)
  1. FUROSEMIDE [Concomitant]
  2. ADCETRIS [Suspect]
     Indication: HODGKIN'S DISEASE
     Dosage: ,Q21D, INTRAVENOUS
     Route: 042
     Dates: start: 20111004, end: 20120228
  3. POTASSIUM CHLORIDE [Concomitant]
  4. ZOFRAN [Concomitant]
  5. AMBIEN [Concomitant]
  6. ALBUTEROL SULFATE AUTOHALER [Concomitant]

REACTIONS (2)
  - LYMPHADENOPATHY [None]
  - PNEUMONITIS [None]
